FAERS Safety Report 11333331 (Version 1)
Quarter: 2015Q3

REPORT INFORMATION
  Report Type: Spontaneous
  Country: US (occurrence: US)
  Receive Date: 20150803
  Receipt Date: 20150803
  Transmission Date: 20151125
  Serious: No
  Sender: FDA-Public Use
  Company Number: US-ELI_LILLY_AND_COMPANY-US200712003982

PATIENT
  Age: 77 Year
  Sex: Male

DRUGS (10)
  1. LITHIUM CARBONATE. [Concomitant]
     Active Substance: LITHIUM CARBONATE
  2. AMINO ACIDS NOS [Concomitant]
     Indication: DYSPEPSIA
     Dosage: UNK, EACH MORNING
  3. LIPITOR [Concomitant]
     Active Substance: ATORVASTATIN CALCIUM
     Indication: BLOOD CHOLESTEROL
     Dosage: UNK, EACH MORNING
  4. TYLENOL /SCH/ [Concomitant]
     Indication: MUSCLE SPASMS
     Dosage: UNK, EACH EVENING
  5. ZYPREXA [Suspect]
     Active Substance: OLANZAPINE
     Indication: BIPOLAR DISORDER
     Dosage: 2.5 MG, EACH EVENING
     Route: 048
     Dates: start: 2002, end: 200609
  6. ZYPREXA [Suspect]
     Active Substance: OLANZAPINE
     Dosage: 2.5 MG, QOD
     Route: 048
     Dates: start: 200609, end: 200609
  7. BICARBONATE [Concomitant]
     Active Substance: BICARBONATE ION
     Indication: BLOOD SODIUM
     Dosage: UNK, EACH MORNING
  8. FUROSEMIDE. [Concomitant]
     Active Substance: FUROSEMIDE
     Indication: OEDEMA PERIPHERAL
     Dosage: UNK, EACH MORNING
  9. ZYPREXA [Suspect]
     Active Substance: OLANZAPINE
     Dosage: 2.5 MG, EACH EVENING
     Route: 048
  10. COZAAR [Concomitant]
     Active Substance: LOSARTAN POTASSIUM
     Indication: BLOOD PRESSURE MEASUREMENT
     Dosage: UNK, EACH EVENING

REACTIONS (9)
  - Tremor [Recovered/Resolved]
  - Extrapyramidal disorder [Recovered/Resolved]
  - Bruxism [Not Recovered/Not Resolved]
  - Anxiety [Recovered/Resolved]
  - Feelings of worthlessness [Recovered/Resolved]
  - Abnormal dreams [Recovered/Resolved]
  - Dependence [Not Recovered/Not Resolved]
  - Asthenia [Recovered/Resolved]
  - Blood pressure systolic increased [Unknown]

NARRATIVE: CASE EVENT DATE: 200609
